FAERS Safety Report 9272935 (Version 4)
Quarter: 2013Q2

REPORT INFORMATION
  Report Type: Report from Study
  Country: CA (occurrence: CA)
  Receive Date: 20130506
  Receipt Date: 20130522
  Transmission Date: 20140414
  Serious: Yes (Hospitalization, Other)
  Sender: FDA-Public Use
  Company Number: CA-ABBOTT-13P-028-1079156-00

PATIENT
  Age: 40 Year
  Sex: Female

DRUGS (2)
  1. HUMIRA [Suspect]
     Indication: PSORIATIC ARTHROPATHY
     Route: 058
     Dates: start: 20130315, end: 20130411
  2. HUMIRA [Suspect]
     Dates: start: 20130517

REACTIONS (4)
  - Post procedural complication [Unknown]
  - Nephrolithiasis [Not Recovered/Not Resolved]
  - Dysuria [Recovered/Resolved]
  - Swelling [Recovered/Resolved]
